FAERS Safety Report 21402225 (Version 2)
Quarter: 2022Q4

REPORT INFORMATION
  Report Type: Spontaneous
  Country: US (occurrence: US)
  Receive Date: 20221003
  Receipt Date: 20221214
  Transmission Date: 20230112
  Serious: Yes (Hospitalization, Other)
  Sender: FDA-Public Use
  Company Number: US-CHEMOCENTRYX, INC.-2022USCCXI0368

PATIENT

DRUGS (11)
  1. TAVNEOS [Suspect]
     Active Substance: AVACOPAN
     Indication: Anti-neutrophil cytoplasmic antibody positive vasculitis
     Dosage: 30 MG, 2X/DAY IN THE MORNING AND EVENING
     Route: 048
     Dates: start: 20220804, end: 20220831
  2. TAVNEOS [Suspect]
     Active Substance: AVACOPAN
     Dosage: 30 MG, 2X/DAY IN THE MORNING AND EVENING
     Route: 048
     Dates: start: 20220911
  3. PREDNISONE [Concomitant]
     Active Substance: PREDNISONE
     Indication: Product used for unknown indication
     Dosage: 30 MG, 1X/DAY
     Route: 065
     Dates: end: 2022
  4. PREDNISONE [Concomitant]
     Active Substance: PREDNISONE
     Dosage: 20 UNK
     Route: 065
     Dates: start: 202209
  5. RITUXIMAB [Concomitant]
     Active Substance: RITUXIMAB
     Indication: Product used for unknown indication
     Dosage: UNK
  6. PENTAMIDINE [Concomitant]
     Active Substance: PENTAMIDINE
     Indication: Product used for unknown indication
     Dosage: 300 MG, 1X/MONTH
     Route: 065
  7. CYCLOBENZAPRINE [Concomitant]
     Active Substance: CYCLOBENZAPRINE
     Indication: Product used for unknown indication
     Dosage: 10 MG, 2X/DAY AS NEEDED
     Route: 048
  8. CALCIUM CARBONATE\CHOLECALCIFEROL [Concomitant]
     Active Substance: CALCIUM CARBONATE\CHOLECALCIFEROL
     Indication: Product used for unknown indication
     Dosage: 1 TABLETS, 2X/DAY
     Route: 048
  9. LEVOTHYROXINE [Concomitant]
     Active Substance: LEVOTHYROXINE
     Indication: Product used for unknown indication
     Dosage: 137 ?G, 1X/DAY
     Route: 048
  10. PANTOPRAZOLE [Concomitant]
     Active Substance: PANTOPRAZOLE
     Indication: Product used for unknown indication
     Dosage: 40 MG, 1X/DAY DAILY BEFORE BREAKFAST
     Route: 048
  11. VALACYCLOVIR HYDROCHLORIDE [Concomitant]
     Active Substance: VALACYCLOVIR HYDROCHLORIDE
     Indication: Product used for unknown indication
     Dosage: 500 MG, 2X/DAY
     Route: 048

REACTIONS (12)
  - Acute respiratory failure [Unknown]
  - Deep vein thrombosis [Unknown]
  - Chronic left ventricular failure [Unknown]
  - Cardiorenal syndrome [Unknown]
  - Pulmonary embolism [Unknown]
  - Thoracic vertebral fracture [Not Recovered/Not Resolved]
  - Electrocardiogram T wave inversion [Recovered/Resolved]
  - Pseudomonal bacteraemia [Unknown]
  - Acute kidney injury [Recovering/Resolving]
  - Laboratory test abnormal [Unknown]
  - Palpitations [Unknown]
  - Troponin increased [Unknown]

NARRATIVE: CASE EVENT DATE: 20220801
